FAERS Safety Report 6120403-7 (Version None)
Quarter: 2009Q1

REPORT INFORMATION
  Report Type: 
  Country: None (occurrence: None)
  Receive Date: 20090317
  Receipt Date: 20090309
  Transmission Date: 20090719
  Serious: Yes (Hospitalization, Other)
  Sender: FDA-Public Use
  Company Number: PHHY2009GB03038

PATIENT
  Sex: Female

DRUGS (4)
  1. CLOZARIL [Suspect]
     Indication: SCHIZOPHRENIA
     Dosage: 250 MG/DAY
     Dates: start: 20030314
  2. CLOZARIL [Suspect]
     Dosage: 50MG MANE AND 200MG NOCTE
     Dates: start: 20090126, end: 20090205
  3. DOTHIEPIN HYDROCHLORIDE [Concomitant]
  4. RANITIDINE [Concomitant]

REACTIONS (12)
  - ANAEMIA [None]
  - BLOOD PRESSURE DECREASED [None]
  - DEHYDRATION [None]
  - EATING DISORDER [None]
  - ELECTROCONVULSIVE THERAPY [None]
  - FALL [None]
  - HEART RATE INCREASED [None]
  - MENTAL IMPAIRMENT [None]
  - TACHYCARDIA [None]
  - TREATMENT NONCOMPLIANCE [None]
  - URINARY TRACT INFECTION [None]
  - WHITE BLOOD CELL COUNT INCREASED [None]
